FAERS Safety Report 11980740 (Version 3)
Quarter: 2016Q2

REPORT INFORMATION
  Report Type: Spontaneous
  Country: JP (occurrence: JP)
  Receive Date: 20160129
  Receipt Date: 20160415
  Transmission Date: 20160815
  Serious: Yes (Hospitalization)
  Sender: FDA-Public Use
  Company Number: JP-GE HEALTHCARE MEDICAL DIAGNOSTICS-OSCN-PR-1601S-0009

PATIENT
  Age: 57 Year
  Sex: Female
  Weight: 57 kg

DRUGS (12)
  1. CLARITHROMYCIN. [Concomitant]
     Active Substance: CLARITHROMYCIN
     Dates: start: 20160115, end: 20160118
  2. OMNISCAN [Suspect]
     Active Substance: GADODIAMIDE
     Indication: MASS
  3. PROMETHAZINE METHYLENE DISALICYLATE [Concomitant]
     Dates: start: 20160115, end: 20160118
  4. CEFALEXIN [Concomitant]
     Active Substance: CEPHALEXIN
     Dates: start: 20160116, end: 20160118
  5. OMNISCAN [Suspect]
     Active Substance: GADODIAMIDE
     Indication: CHEST PAIN
  6. SALICYLAMIDE [Concomitant]
     Active Substance: SALICYLAMIDE
     Dates: start: 20160115, end: 20160118
  7. OMNISCAN [Suspect]
     Active Substance: GADODIAMIDE
     Indication: MYOSITIS
     Route: 042
     Dates: start: 20160114, end: 20160114
  8. DOMPERIDONE [Concomitant]
     Active Substance: DOMPERIDONE
     Dates: start: 20160115, end: 20160118
  9. OMNISCAN [Suspect]
     Active Substance: GADODIAMIDE
     Indication: DIAGNOSTIC PROCEDURE
  10. CAFFEINE. [Concomitant]
     Active Substance: CAFFEINE
     Dates: start: 20160115, end: 20160118
  11. PARACETAMOL [Concomitant]
     Active Substance: ACETAMINOPHEN
     Dates: start: 20160115, end: 20160118
  12. CALONEL [Concomitant]
     Dates: start: 20160115

REACTIONS (3)
  - Liver disorder [Recovering/Resolving]
  - Pain in extremity [Unknown]
  - Hypercreatinaemia [Recovering/Resolving]

NARRATIVE: CASE EVENT DATE: 20160118
